FAERS Safety Report 25975037 (Version 1)
Quarter: 2025Q4

REPORT INFORMATION
  Report Type: Spontaneous
  Country: US (occurrence: None)
  Receive Date: 20251029
  Receipt Date: 20251029
  Transmission Date: 20260117
  Serious: No
  Sender: UCB
  Company Number: US-UCBSA-2025050590

PATIENT
  Age: 36 Year

DRUGS (5)
  1. BIMZELX [Suspect]
     Active Substance: BIMEKIZUMAB-BKZX
     Indication: Hidradenitis
     Dosage: 320 MILLIGRAM, EV 2 WEEKS(QOW)
  2. HYDROXYZ HCL TAB 25MG [Concomitant]
     Indication: Product used for unknown indication
     Dosage: 25 MILLIGRAM
  3. METRONIDAZOLGEL 1% [Concomitant]
     Indication: Product used for unknown indication
     Dosage: UNK
  4. SIMLANDI [Concomitant]
     Active Substance: ADALIMUMAB-RYVK
     Indication: Product used for unknown indication
     Dosage: UNK
  5. SMZfTMP OS [Concomitant]
     Indication: Product used for unknown indication
     Dosage: 800-160

REACTIONS (3)
  - Respiratory tract infection [Unknown]
  - Urinary tract infection [Unknown]
  - Product dose omission issue [Unknown]
